FAERS Safety Report 5725900-1 (Version None)
Quarter: 2008Q2

REPORT INFORMATION
  Report Type: 
  Country: None (occurrence: None)
  Receive Date: 20080501
  Receipt Date: 20080501
  Transmission Date: 20081010
  Serious: Yes (Death, Life-Threatening, Hospitalization, Disabling)
  Sender: FDA-Public Use
  Company Number: None

PATIENT

DRUGS (1)
  1. SEPTOCAINE [Suspect]
     Dosage: 1:100,000 AND 1:200,000
     Dates: start: 20000403

REACTIONS (2)
  - MATERNAL DRUGS AFFECTING FOETUS [None]
  - THERAPEUTIC AGENT TOXICITY [None]
